FAERS Safety Report 21580775 (Version 1)
Quarter: 2022Q4

REPORT INFORMATION
  Report Type: Spontaneous
  Country: US (occurrence: US)
  Receive Date: 20221111
  Receipt Date: 20221111
  Transmission Date: 20230112
  Serious: Yes (Life-Threatening, Hospitalization, Other)
  Sender: FDA-Public Use
  Company Number: US-MACLEODS PHARMACEUTICALS US LTD-MAC2022038208

PATIENT

DRUGS (6)
  1. OLANZAPINE [Suspect]
     Active Substance: OLANZAPINE
     Indication: Agitation
     Dosage: 25 MILLIGRAM, SINGLE (REPEATED DOSES)
     Route: 065
  2. VALPROIC ACID [Concomitant]
     Active Substance: VALPROIC ACID
     Indication: Dementia with Lewy bodies
     Dosage: 500 MILLIGRAM, BID (1000 MG)
     Route: 065
  3. CLOZAPINE [Concomitant]
     Active Substance: CLOZAPINE
     Indication: Dementia with Lewy bodies
     Dosage: 12.5 MILLIGRAM, QD
     Route: 065
  4. CLOZAPINE [Concomitant]
     Active Substance: CLOZAPINE
     Dosage: 50 MILLIGRAM, QD (GRADUAL UP-TITRATION)
     Route: 065
  5. CLOZAPINE [Concomitant]
     Active Substance: CLOZAPINE
     Dosage: 50 MILLIGRAM, BID (TITRATION)
     Route: 065
  6. DONEPEZIL [Concomitant]
     Active Substance: DONEPEZIL
     Indication: Dementia with Lewy bodies
     Dosage: 10 MILLIGRAM, QD
     Route: 065

REACTIONS (3)
  - Motor dysfunction [Recovered/Resolved]
  - Cognitive disorder [Recovered/Resolved]
  - Condition aggravated [Recovered/Resolved]
